FAERS Safety Report 16569122 (Version 1)
Quarter: 2019Q3

REPORT INFORMATION
  Report Type: Spontaneous
  Country: US (occurrence: US)
  Receive Date: 20190714
  Receipt Date: 20190714
  Transmission Date: 20191004
  Serious: No
  Sender: FDA-Public Use
  Company Number: US-APOTEX-2019AP016479

PATIENT
  Age: 81 Year
  Sex: Female

DRUGS (2)
  1. CELECOXIB. [Suspect]
     Active Substance: CELECOXIB
     Indication: MUSCULOSKELETAL PAIN
     Dosage: 1 DF, QD
     Route: 048
     Dates: start: 20190528, end: 20190530
  2. CELECOXIB. [Suspect]
     Active Substance: CELECOXIB
     Dosage: 1 DF, UNK
     Route: 048
     Dates: start: 20190602, end: 20190603

REACTIONS (2)
  - Product substitution issue [Unknown]
  - Rash generalised [Recovered/Resolved]

NARRATIVE: CASE EVENT DATE: 20190529
